FAERS Safety Report 25736021 (Version 1)
Quarter: 2025Q3

REPORT INFORMATION
  Report Type: Spontaneous
  Country: CN (occurrence: CN)
  Receive Date: 20250828
  Receipt Date: 20250828
  Transmission Date: 20251020
  Serious: Yes (Other)
  Sender: AMGEN
  Company Number: CN-AMGEN-CHNSP2025168663

PATIENT

DRUGS (1)
  1. IMLYGIC [Suspect]
     Active Substance: TALIMOGENE LAHERPAREPVEC
     Indication: Malignant melanoma
     Route: 065

REACTIONS (60)
  - Colitis [Unknown]
  - Erysipelas [Unknown]
  - Cytokine release syndrome [Unknown]
  - Hepatitis [Unknown]
  - Sepsis [Unknown]
  - Systemic inflammatory response syndrome [Unknown]
  - Autoimmune colitis [Unknown]
  - Hypoxia [Unknown]
  - Dermo-hypodermitis [Unknown]
  - Skin necrosis [Unknown]
  - Autoimmune hepatitis [Unknown]
  - Embolism [Unknown]
  - Tumour haemorrhage [Unknown]
  - Syncope [Unknown]
  - Oral herpes [Unknown]
  - Herpes virus infection [Unknown]
  - Nausea [Unknown]
  - Diarrhoea [Unknown]
  - Vomiting [Unknown]
  - Myalgia [Unknown]
  - Arthralgia [Unknown]
  - Vertigo [Unknown]
  - Injection site discomfort [Unknown]
  - Injection site erythema [Unknown]
  - Cellulitis [Unknown]
  - Vitiligo [Unknown]
  - Ulcer [Unknown]
  - Skin ulcer [Unknown]
  - Lymphoedema [Unknown]
  - Hypophysitis [Unknown]
  - Hepatic lesion [Unknown]
  - Genital herpes [Unknown]
  - Injection site haemorrhage [Unknown]
  - Skin lesion [Unknown]
  - Injection site pruritus [Unknown]
  - Melanosis [Unknown]
  - Lymphadenopathy [Unknown]
  - Herpes zoster [Unknown]
  - Stomatitis [Unknown]
  - Wound infection [Unknown]
  - Rash pustular [Unknown]
  - Morphoea [Unknown]
  - Dermatitis herpetiformis [Unknown]
  - Granuloma [Unknown]
  - Inflammation [Unknown]
  - Injection site inflammation [Unknown]
  - Injection site rash [Unknown]
  - Injection site vesicles [Unknown]
  - Injection site cellulitis [Unknown]
  - Rash pruritic [Unknown]
  - Herpes simplex [Unknown]
  - Rash vesicular [Unknown]
  - Skin mass [Unknown]
  - Fatigue [Unknown]
  - Skin infection [Unknown]
  - Pyrexia [Unknown]
  - Injection site pain [Unknown]
  - Influenza like illness [Unknown]
  - Chills [Unknown]
  - Headache [Unknown]
